FAERS Safety Report 8382188-3 (Version None)
Quarter: 2012Q2

REPORT INFORMATION
  Report Type: 
  Country: None (occurrence: None)
  Receive Date: 20120524
  Receipt Date: 20120509
  Transmission Date: 20120825
  Serious: Yes (Hospitalization, Other)
  Sender: FDA-Public Use
  Company Number: NL-CELGENEUS-114-20785-10071338

PATIENT
  Sex: Female
  Weight: 62 kg

DRUGS (5)
  1. MELPHALAN [Suspect]
     Indication: MULTIPLE MYELOMA
     Dosage: 10 MILLIGRAM
     Route: 048
     Dates: start: 20100331
  2. THALOMID [Suspect]
     Indication: MULTIPLE MYELOMA
     Dosage: 200 MILLIGRAM
     Route: 048
     Dates: start: 20100331, end: 20100710
  3. MELPHALAN [Suspect]
     Dosage: 10 MILLIGRAM
     Route: 048
     Dates: start: 20100614, end: 20100623
  4. PREDNISONE TAB [Suspect]
     Dosage: 120 MILLIGRAM
     Route: 048
     Dates: start: 20100619, end: 20100623
  5. PREDNISONE TAB [Suspect]
     Indication: MULTIPLE MYELOMA
     Dosage: 120 MILLIGRAM
     Route: 048
     Dates: start: 20100331

REACTIONS (2)
  - BREAST CANCER [None]
  - LYMPHADENECTOMY [None]
